FAERS Safety Report 10573448 (Version 1)
Quarter: 2014Q4

REPORT INFORMATION
  Report Type: Spontaneous
  Country: US (occurrence: US)
  Receive Date: 20141110
  Receipt Date: 20141110
  Transmission Date: 20150529
  Serious: No
  Sender: FDA-Public Use
  Company Number: US-ENDO PHARMACEUTICALS INC.-ACC320140001

PATIENT
  Sex: Female
  Weight: 61.29 kg

DRUGS (3)
  1. ACETAMINOPHEN #3 [Suspect]
     Active Substance: ACETAMINOPHEN\CODEINE PHOSPHATE
     Dosage: 1200/120MG
     Route: 048
     Dates: end: 20140707
  2. ACETAMINOPHEN AND CODEINE [Suspect]
     Active Substance: ACETAMINOPHEN\CODEINE PHOSPHATE
     Indication: FIBROMYALGIA
     Dosage: 300/30MG
     Route: 048
  3. ACETAMINOPHEN #3 [Suspect]
     Active Substance: ACETAMINOPHEN\CODEINE PHOSPHATE
     Indication: FIBROMYALGIA
     Dosage: 2400/240MG
     Route: 048

REACTIONS (2)
  - Swollen tongue [Recovering/Resolving]
  - Oedema mouth [Recovering/Resolving]

NARRATIVE: CASE EVENT DATE: 2014
